FAERS Safety Report 9352958 (Version 1)
Quarter: 2013Q2

REPORT INFORMATION
  Report Type: Spontaneous
  Country: US (occurrence: None)
  Receive Date: 20130614
  Receipt Date: 20130614
  Transmission Date: 20140414
  Serious: Yes (Hospitalization, Other)
  Sender: FDA-Public Use
  Company Number: None

PATIENT
  Age: 58 Year
  Sex: Male
  Weight: 93.4 kg

DRUGS (12)
  1. TACROLIMUS [Suspect]
     Indication: IMMUNOSUPPRESSION
     Route: 048
     Dates: start: 20120615
  2. MYFORTIC [Suspect]
     Indication: IMMUNOSUPPRESSION
     Route: 048
     Dates: start: 20120614
  3. THYMOGLOBULIN [Concomitant]
  4. ASA [Concomitant]
  5. CELEXA [Concomitant]
  6. METOPROLOL TARTRATE [Concomitant]
  7. MULTIVITAMIN [Concomitant]
  8. OMEPRAZOLE [Concomitant]
  9. SIMVASTATIN [Concomitant]
  10. SULFAMETHOXAZOLE TRIMETHOPRIM [Concomitant]
  11. TAMSOLUSIN [Concomitant]
  12. VALAGANCICLOVIR [Concomitant]

REACTIONS (8)
  - Malaise [None]
  - Asthenia [None]
  - Lethargy [None]
  - Decreased appetite [None]
  - Weight decreased [None]
  - Dysuria [None]
  - Urine output decreased [None]
  - Blood creatinine increased [None]
